FAERS Safety Report 20071148 (Version 23)
Quarter: 2023Q1

REPORT INFORMATION
  Report Type: Report from Study
  Country: IT (occurrence: IT)
  Receive Date: 20211115
  Receipt Date: 20230315
  Transmission Date: 20230417
  Serious: Yes (Life-Threatening, Hospitalization)
  Sender: FDA-Public Use
  Company Number: IT-AMGEN-ITACT2021180051

PATIENT
  Age: 6 Year
  Sex: Female

DRUGS (37)
  1. CARFILZOMIB [Suspect]
     Active Substance: CARFILZOMIB
     Indication: Acute lymphocytic leukaemia
     Dosage: UNK MILLIGRAM
     Route: 042
     Dates: start: 20210914
  2. CYTARABINE [Suspect]
     Active Substance: CYTARABINE
     Indication: Acute lymphocytic leukaemia
     Dosage: 24-55 MILLIGRAM
     Route: 042
     Dates: start: 20211012
  3. MERCAPTOPURINE [Suspect]
     Active Substance: MERCAPTOPURINE
     Indication: Acute lymphocytic leukaemia
     Dosage: 25-50 MILLIGRAM/SQ. METER
     Route: 065
     Dates: start: 20211027
  4. PEG/L-ASPARAGINASE [Suspect]
     Active Substance: PEGASPARGASE
     Indication: Acute lymphocytic leukaemia
     Dosage: 730 UNK
     Route: 065
     Dates: start: 20211110
  5. VINCRISTINE [Suspect]
     Active Substance: VINCRISTINE
     Indication: Acute lymphocytic leukaemia
     Dosage: 1.1 MILLIGRAM
     Route: 065
     Dates: start: 20211110, end: 20211110
  6. AMPHOTERICIN B [Concomitant]
     Active Substance: AMPHOTERICIN B
     Dosage: 75 MILLIGRAM
     Route: 042
     Dates: start: 20211007, end: 20211215
  7. CYCLOPHOSPHAMIDE [Concomitant]
     Active Substance: CYCLOPHOSPHAMIDE
     Indication: Acute lymphocytic leukaemia
     Dosage: 730 MILLIGRAM
     Route: 065
     Dates: start: 20211027
  8. DAUNORUBICIN [Concomitant]
     Active Substance: DAUNORUBICIN
     Indication: Acute lymphocytic leukaemia
     Dosage: UNK
     Route: 065
  9. ACYCLOVIR [Concomitant]
     Active Substance: ACYCLOVIR
     Dosage: 200 MILLIGRAM
     Route: 042
     Dates: start: 20210914, end: 20211018
  10. ONDANSETRON [Concomitant]
     Active Substance: ONDANSETRON
     Dosage: 4 MILLIGRAM
     Route: 042
     Dates: start: 20210917, end: 20211110
  11. ACETAMINOPHEN [Concomitant]
     Active Substance: ACETAMINOPHEN
     Dosage: 200-300 MILLIGRAM
     Route: 042
     Dates: start: 20210917, end: 20211215
  12. COTRIMOXAZOLE [Concomitant]
     Active Substance: SULFAMETHOXAZOLE\TRIMETHOPRIM
     Dosage: 240 MILLIGRAM
     Dates: start: 20210927, end: 20211210
  13. OMEPRAZOLE [Concomitant]
     Active Substance: OMEPRAZOLE
     Dosage: 15-20 MILLIGRAM
     Dates: start: 20210913, end: 20211211
  14. SIMETHICONE (DIMETHICONE) [Concomitant]
     Active Substance: DIMETHICONE
     Dosage: 20 GTT DROPS
     Route: 048
     Dates: start: 20210913, end: 20220115
  15. URSODIOL [Concomitant]
     Active Substance: URSODIOL
     Dosage: 225 MILLIGRAM
     Route: 048
     Dates: start: 20210918, end: 20211123
  16. FUROSEMIDE [Concomitant]
     Active Substance: FUROSEMIDE
     Dosage: 5-15 MILLIGRAM
     Dates: start: 20210923, end: 20211221
  17. GABAPENTIN [Concomitant]
     Active Substance: GABAPENTIN
     Dosage: 100 MILLIGRAM
     Route: 048
     Dates: start: 20211006, end: 20211128
  18. POTASSIUM CHLORIDE [Concomitant]
     Active Substance: POTASSIUM CHLORIDE
     Dosage: 600-1200 MILLIGRAM
     Route: 048
     Dates: start: 20211018, end: 20211128
  19. CARNITINE [Concomitant]
     Active Substance: CARNITINE
     Dosage: 250 MILLIGRAM
     Route: 048
     Dates: start: 20210928, end: 20211106
  20. HYDROCORTISONE [Concomitant]
     Active Substance: HYDROCORTISONE
     Dosage: 5-30 MILLIGRAM
     Dates: start: 20211010, end: 20211128
  21. KCL [Concomitant]
     Active Substance: POTASSIUM CHLORIDE
     Dosage: 20-80 MILLIEQUIVALENT-1200 MILLIGRAM
     Dates: start: 20211003, end: 20211122
  22. RAMIPRIL [Concomitant]
     Active Substance: RAMIPRIL
     Dosage: 2.5-5 MILLIGRAM
     Route: 048
     Dates: start: 20210930, end: 20211123
  23. AMLODIPINE [Concomitant]
     Active Substance: AMLODIPINE BESYLATE
     Dosage: 1.25-5 MILLIGRAM
     Route: 048
     Dates: start: 20211009, end: 20211221
  24. COTRIMOXAZOLE [Concomitant]
     Active Substance: SULFAMETHOXAZOLE\TRIMETHOPRIM
     Dosage: 40-240 MILLIGRAM
     Route: 042
     Dates: start: 20210927, end: 20211207
  25. PIPERACILLIN AND TAZOBACTAM [Concomitant]
     Active Substance: PIPERACILLIN SODIUM\TAZOBACTAM SODIUM
     Dosage: 2.5-2.25 GRAM (2 GR/500 MG)
     Route: 042
     Dates: start: 20210916, end: 20211110
  26. ACETYLCYSTEINE [Concomitant]
     Active Substance: ACETYLCYSTEINE
     Dosage: 150 MILLIGRAM
     Route: 042
     Dates: start: 20210918, end: 20211018
  27. METHOTREXATE [Concomitant]
     Active Substance: METHOTREXATE
     Dosage: 12 MILLIGRAM
     Route: 037
     Dates: start: 20211012, end: 20211110
  28. DEXAMETHASONE [Concomitant]
     Active Substance: DEXAMETHASONE
     Indication: Acute lymphocytic leukaemia
     Dosage: 3 MILLIGRAM/SQ. METER
     Route: 042
     Dates: start: 20211027, end: 20211110
  29. AMOXICILLIN\CLAVULANIC ACID [Concomitant]
     Active Substance: AMOXICILLIN\CLAVULANIC ACID
     Dosage: 500 MILLIGRAM
     Route: 048
     Dates: start: 20211018, end: 20211110
  30. NIFEDIPINE [Concomitant]
     Active Substance: NIFEDIPINE
     Dosage: 8 GTT DROPS
     Route: 048
     Dates: start: 20211029, end: 20211106
  31. CALCIUM GLUCONATE [Concomitant]
     Active Substance: CALCIUM GLUCONATE
     Dosage: 10-20 MILLILITRE
     Route: 042
     Dates: start: 20210922, end: 20211109
  32. Immunoglobulin [Concomitant]
     Dosage: 10 GRAM
     Route: 042
     Dates: start: 20211109, end: 20211109
  33. VITAMIN B COMPLEX [Concomitant]
     Active Substance: CYANOCOBALAMIN\DEXPANTHENOL\NIACINAMIDE\PYRIDOXINE HYDROCHLORIDE\RIBOFLAVIN 5^-PHOSPHATE SODIUM\THIA
     Dosage: 1 UNK
     Route: 048
     Dates: start: 20211101, end: 20211113
  34. LOPERAMIDE [Concomitant]
     Active Substance: LOPERAMIDE
     Dosage: 2 MILLIGRAM
     Route: 048
     Dates: start: 20211108, end: 20211111
  35. CHLORPHENIRAMINE MALEATE [Concomitant]
     Active Substance: CHLORPHENIRAMINE MALEATE
     Dosage: 3-4 MILLIGRAM
     Route: 042
     Dates: start: 20210914, end: 20211215
  36. MESNA [Concomitant]
     Active Substance: MESNA
     Dosage: 150 MILLIGRAM
     Route: 042
     Dates: start: 20211027, end: 20211027
  37. TRAMADOL [Concomitant]
     Active Substance: TRAMADOL
     Dosage: 20 MILLIGRAM
     Route: 042
     Dates: start: 20211107, end: 20211107

REACTIONS (1)
  - Septic shock [Recovered/Resolved]

NARRATIVE: CASE EVENT DATE: 20211111
